FAERS Safety Report 8183340-2 (Version None)
Quarter: 2012Q1

REPORT INFORMATION
  Report Type: 
  Country: None (occurrence: None)
  Receive Date: 20120305
  Receipt Date: 20120220
  Transmission Date: 20120608
  Serious: Yes (Hospitalization)
  Sender: FDA-Public Use
  Company Number: US-MYLANLABS-2012S1003993

PATIENT
  Sex: Male

DRUGS (6)
  1. TACROLIMUS [Suspect]
     Dosage: DAYS 9-10
     Route: 065
  2. ANTI-THYMOCYTE GLOBULIN NOS [Concomitant]
     Indication: IMMUNOSUPPRESSION
     Dosage: 4 MG/KG DAY 0
     Route: 065
  3. ANTI-THYMOCYTE GLOBULIN NOS [Concomitant]
     Dosage: 1 MG/KG DAYS 1-4
     Route: 065
  4. TACROLIMUS [Suspect]
     Indication: IMMUNOSUPPRESSION
     Dosage: DAYS 5-8 AND 11-12
     Route: 065
  5. PREDNISONE TAB [Concomitant]
     Indication: IMMUNOSUPPRESSION
     Dosage: 20G DAILY STARTING DAY 3
     Route: 065
  6. MYCOPHENOLATE MOFETIL [Concomitant]
     Indication: IMMUNOSUPPRESSION
     Route: 065

REACTIONS (1)
  - THROMBOTIC MICROANGIOPATHY [None]
